FAERS Safety Report 23057128 (Version 1)
Quarter: 2023Q4

REPORT INFORMATION
  Report Type: Spontaneous
  Country: US (occurrence: None)
  Receive Date: 20231012
  Receipt Date: 20231012
  Transmission Date: 20240109
  Serious: Yes (Hospitalization)
  Sender: FDA-Public Use
  Company Number: US-Unichem Pharmaceuticals (USA) Inc-UCM202310-001265

PATIENT
  Age: 64 Year
  Sex: Female

DRUGS (2)
  1. BACLOFEN [Suspect]
     Active Substance: BACLOFEN
     Indication: Product used for unknown indication
     Dosage: UNKNOWN
     Route: 037
     Dates: start: 2017
  2. BACLOFEN [Suspect]
     Active Substance: BACLOFEN
     Dosage: UNKNOWN

REACTIONS (4)
  - Hypothermia [Unknown]
  - Bradycardia [Unknown]
  - Acute respiratory failure [Unknown]
  - Overdose [Unknown]
